FAERS Safety Report 4441599-9 (Version None)
Quarter: 2004Q3

REPORT INFORMATION
  Report Type: 
  Country: None (occurrence: None)
  Receive Date: 20040907
  Receipt Date: 20040903
  Transmission Date: 20050211
  Serious: Yes (Life-Threatening, Hospitalization)
  Sender: FDA-Public Use
  Company Number: GB-BRISTOL-MYERS SQUIBB COMPANY-12691366

PATIENT

DRUGS (1)
  1. PACLITAXEL [Suspect]
     Indication: BREAST CANCER
     Dosage: THERAPY DATES: 04-JUN-2004 TO 27-AUG-2004
     Dates: start: 20040827, end: 20040827

REACTIONS (2)
  - DYSPNOEA [None]
  - PLEURITIC PAIN [None]
